FAERS Safety Report 9678083 (Version 1)
Quarter: 2013Q4

REPORT INFORMATION
  Report Type: Spontaneous
  Country: US (occurrence: US)
  Receive Date: 20131108
  Receipt Date: 20131108
  Transmission Date: 20140711
  Serious: Yes (Other)
  Sender: FDA-Public Use
  Company Number: US-BAYER-2013-134315

PATIENT
  Age: 24 Year
  Sex: Female
  Weight: 73 kg

DRUGS (5)
  1. MIRENA [Suspect]
     Indication: CONTRACEPTION
     Dosage: DAILY DOSE 20 ?G
     Route: 015
     Dates: end: 20121124
  2. HUMIRA [Concomitant]
     Indication: PSORIATIC ARTHROPATHY
     Dosage: 40 MG, UNK
     Dates: start: 201105
  3. PRENATAL VITAMINS [Concomitant]
     Dosage: DAILY
     Dates: start: 201208
  4. DESONIDE [Concomitant]
     Indication: PSORIASIS
  5. ONDANSETRON [Concomitant]
     Dosage: 4MG, 4 IN 1 D

REACTIONS (3)
  - Ectopic pregnancy with contraceptive device [None]
  - Drug ineffective [None]
  - Depression [None]
